FAERS Safety Report 7717855-5 (Version None)
Quarter: 2011Q3

REPORT INFORMATION
  Report Type: 
  Country: None (occurrence: None)
  Receive Date: 20110830
  Receipt Date: 20110826
  Transmission Date: 20111222
  Serious: Yes (Hospitalization)
  Sender: FDA-Public Use
  Company Number: US-PFIZER INC-2011200473

PATIENT
  Age: 41 Year
  Sex: Female

DRUGS (1)
  1. VERAPAMIL HCL [Suspect]
     Dosage: 240 MG, 80 TABLETS (19.2 G)
     Route: 048

REACTIONS (9)
  - OVERDOSE [None]
  - BRADYCARDIA [None]
  - ELECTROCARDIOGRAM T WAVE INVERSION [None]
  - RENAL FAILURE [None]
  - COLITIS ISCHAEMIC [None]
  - HYPOTENSION [None]
  - SUICIDE ATTEMPT [None]
  - ACUTE RESPIRATORY FAILURE [None]
  - LEUKOCYTOSIS [None]
